FAERS Safety Report 16965035 (Version 1)
Quarter: 2019Q4

REPORT INFORMATION
  Report Type: Spontaneous
  Country: SE (occurrence: SE)
  Receive Date: 20191028
  Receipt Date: 20191028
  Transmission Date: 20200122
  Serious: Yes (Other)
  Sender: FDA-Public Use
  Company Number: SE-TEVA-2019-SE-1127684

PATIENT
  Age: 83 Year
  Sex: Female

DRUGS (15)
  1. METOPROLOL. [Concomitant]
     Active Substance: METOPROLOL
     Dosage: 50 MG
     Dates: start: 20171225
  2. INOLAXOL  GRANULAT I DOSPASE [Concomitant]
     Dosage: 2 DF,1 SACHET TWICE DAILY
     Dates: start: 20171228
  3. ATORVASTATIN [Concomitant]
     Active Substance: ATORVASTATIN
     Dosage: 80 MG
     Dates: end: 201908
  4. OMEPRAZOLE. [Concomitant]
     Active Substance: OMEPRAZOLE
     Dosage: 20 MG
     Dates: start: 20180629
  5. CANODERM 5 % KRAM [Concomitant]
     Dates: start: 20190529
  6. CITALOPRAM [Concomitant]
     Active Substance: CITALOPRAM HYDROBROMIDE
     Dosage: 0.5 TABLET 1 TIMES DAILY?STRENGTH 20 MG
     Dates: start: 20190529
  7. LETROZOLE. [Suspect]
     Active Substance: LETROZOLE
     Indication: BREAST CANCER
     Dates: start: 201712, end: 201908
  8. LOCOID 0,1 % SALVA [Concomitant]
     Dosage: APPLIED 2 EVENINGS PER WEEK
     Dates: start: 20180614
  9. ALENDRONAT VECKOTABLETT [Concomitant]
     Dosage: 70 MG
     Dates: start: 20171224
  10. TROMBYL 75 MG TABLETT [Concomitant]
     Active Substance: ASPIRIN
     Dates: start: 20171225
  11. PANODIL [Concomitant]
     Active Substance: ACETAMINOPHEN
     Dosage: 1-2 TABLETS IF NEEDED, NO MORE THAN 8 TABLETS PER DAY
     Dates: start: 20171224
  12. PREDNISOLONE. [Concomitant]
     Active Substance: PREDNISOLONE
     Dosage: 2.5 MG
  13. ELOCON 0,1 % KUTAN LOSNING [Concomitant]
     Dates: start: 20190730
  14. KALCIPOS-D [Concomitant]
     Active Substance: CALCIUM CARBONATE\CHOLECALCIFEROL
     Dosage: 500 MG/400IE, 2 DF
     Dates: start: 20171224
  15. MOVICOL  PULVER TILL ORAL LOSNING I DOSPASE [Concomitant]
     Dosage: 1 SACHET IF NEEDED
     Dates: start: 20171228

REACTIONS (3)
  - Lymphopenia [Unknown]
  - Leukopenia [Unknown]
  - Neutropenia [Unknown]

NARRATIVE: CASE EVENT DATE: 201908
